FAERS Safety Report 10089348 (Version 1)
Quarter: 2014Q2

REPORT INFORMATION
  Report Type: Spontaneous
  Country: IN (occurrence: IN)
  Receive Date: 20140421
  Receipt Date: 20140421
  Transmission Date: 20141212
  Serious: Yes (Hospitalization)
  Sender: FDA-Public Use
  Company Number: IN-MYLANLABS-2014S1008178

PATIENT
  Age: 75 Year
  Sex: Female

DRUGS (1)
  1. IMIPRAMINE [Suspect]
     Indication: MENTAL DISORDER
     Dosage: 25 MG/D
     Route: 065

REACTIONS (1)
  - Interstitial lung disease [Unknown]
